FAERS Safety Report 6987892 (Version 3)
Quarter: 2013Q4

REPORT INFORMATION
  Report Type: Spontaneous
  Country: CH (occurrence: CH)
  Receive Date: 20090506
  Receipt Date: 20131015
  Transmission Date: 20140711
  Serious: Yes (Other)
  Sender: FDA-Public Use
  Company Number: CH-ALEXION-A200900353

PATIENT
  Age: 19 Year
  Sex: Female

DRUGS (11)
  1. SOLIRIS 300MG [Suspect]
     Indication: HAEMOLYTIC URAEMIC SYNDROME
     Dosage: 1200 MG, UNK
     Route: 042
     Dates: start: 20090213
  2. SOLIRIS 300MG [Suspect]
     Indication: OFF LABEL USE
  3. CLAMOXYL [Suspect]
     Indication: INFECTION PROPHYLAXIS
     Dosage: 375 MG, UNK
     Route: 048
     Dates: start: 200902, end: 20090424
  4. NEXIUM [Concomitant]
     Indication: PROPHYLAXIS AGAINST GASTROINTESTINAL ULCER
     Dosage: 40 MG, UNK
     Route: 048
     Dates: start: 200902, end: 20090424
  5. CALCIMAGON [Concomitant]
     Indication: MINERAL SUPPLEMENTATION
     Dosage: UNK, BID
     Route: 048
     Dates: start: 200902
  6. NORVASC [Concomitant]
     Indication: HYPERTENSION
     Dosage: 5 MG, UNK
     Route: 048
     Dates: start: 200902
  7. TOREM [Concomitant]
     Indication: HYPERTENSION
     Dosage: 40 UNK, UNK
     Route: 048
     Dates: start: 200902, end: 20090424
  8. BELOC ZOK [Concomitant]
     Indication: HYPERTENSION
     Dosage: 150 MG, UNK
     Route: 048
     Dates: start: 200902
  9. CALCIUM-PHOSPHATBINDER [Concomitant]
     Dosage: UNK, TID
     Route: 048
     Dates: start: 200902
  10. KCL [Concomitant]
     Indication: MINERAL SUPPLEMENTATION
     Dosage: 40 MMOL, UNK
     Route: 048
     Dates: start: 200902
  11. ACIDUM FOLICUM [Concomitant]
     Indication: SUPPLEMENTATION THERAPY
     Dosage: 3X/ WEEK
     Route: 048
     Dates: start: 200902

REACTIONS (2)
  - Neutropenia [Not Recovered/Not Resolved]
  - Viral upper respiratory tract infection [Unknown]
